FAERS Safety Report 7597400-8 (Version None)
Quarter: 2011Q3

REPORT INFORMATION
  Report Type: 
  Country: None (occurrence: None)
  Receive Date: 20110708
  Receipt Date: 20110629
  Transmission Date: 20111222
  Serious: Yes (Other)
  Sender: FDA-Public Use
  Company Number: JP-B.I. PHARMACEUTICALS,INC./RIDGEFIELD-2011-BP-16967NB

PATIENT
  Sex: Female

DRUGS (5)
  1. GRAMALIL [Concomitant]
     Dosage: 25 MG
     Route: 048
     Dates: start: 20110601
  2. PRADAXA [Suspect]
     Indication: ANTICOAGULANT THERAPY
     Dosage: 220 MG
     Route: 048
  3. FERROUS CITRATE [Concomitant]
     Dosage: 2 G
     Route: 048
  4. LANSOPRAZOLE [Concomitant]
     Dosage: 15 MG
     Route: 048
  5. BIOFERMIN [Concomitant]
     Dosage: 3 G
     Route: 048

REACTIONS (3)
  - OEDEMA PERIPHERAL [None]
  - THROMBOSIS [None]
  - DRUG EFFECT DECREASED [None]
